FAERS Safety Report 21923571 (Version 1)
Quarter: 2023Q1

REPORT INFORMATION
  Report Type: Spontaneous
  Country: US (occurrence: US)
  Receive Date: 20230130
  Receipt Date: 20230130
  Transmission Date: 20230418
  Serious: Yes (Other)
  Sender: FDA-Public Use
  Company Number: US-BRISTOL-MYERS SQUIBB COMPANY-2023-012835

PATIENT
  Age: 58 Year
  Sex: Female
  Weight: 95.7 kg

DRUGS (1)
  1. REVLIMID [Suspect]
     Active Substance: LENALIDOMIDE
     Indication: Plasma cell myeloma
     Dosage: CONTINUOUS 28 DAYS
     Route: 048
     Dates: start: 20161017, end: 20180204

REACTIONS (2)
  - Plasma cell myeloma [Unknown]
  - Off label use [Unknown]
